FAERS Safety Report 10090858 (Version 2)
Quarter: 2014Q2

REPORT INFORMATION
  Report Type: Spontaneous
  Country: GB (occurrence: GB)
  Receive Date: 20140421
  Receipt Date: 20140430
  Transmission Date: 20141212
  Serious: Yes (Death)
  Sender: FDA-Public Use
  Company Number: PHHY2014GB045162

PATIENT
  Age: 51 Year
  Sex: Male

DRUGS (4)
  1. ADOPORT [Suspect]
     Dosage: 1 MG, UNK
     Route: 048
  2. ADOPORT [Suspect]
     Dosage: 0.5 MG, UNK
     Route: 048
  3. MYCOPHENOLATE MOFETIL ACCORD [Suspect]
     Dosage: 500 MG, UNK
  4. PREDNISOLONE [Suspect]
     Dosage: 5 MG, UNK

REACTIONS (1)
  - Death [Fatal]
